FAERS Safety Report 6417694-1 (Version None)
Quarter: 2009Q4

REPORT INFORMATION
  Report Type: 
  Country: None (occurrence: None)
  Receive Date: 20091026
  Receipt Date: 20091013
  Transmission Date: 20100525
  Serious: Yes (Death, Life-Threatening, Hospitalization, Disabling, Other)
  Sender: FDA-Public Use
  Company Number: ADR40022009

PATIENT
  Age: 85 Year
  Sex: Female

DRUGS (8)
  1. SIMVASTATIN [Suspect]
     Indication: CARDIAC FAILURE
     Dosage: 40 MG, 1/1 DAYS ORAL
     Route: 048
     Dates: start: 20080410, end: 20080717
  2. SIMVASTATIN [Suspect]
     Indication: MYOCARDIAL ISCHAEMIA
     Dosage: 40 MG, 1/1 DAYS ORAL
     Route: 048
     Dates: start: 20080410, end: 20080717
  3. ASPIRIN [Concomitant]
  4. NITROGLYCERIN [Concomitant]
  5. ISMN [Concomitant]
  6. NICORANDIL [Concomitant]
  7. OLMESARTAN MEDOXOMIL [Concomitant]
  8. RAMIPRIL [Concomitant]

REACTIONS (5)
  - AMNESIA [None]
  - CARDIAC FAILURE [None]
  - MEMORY IMPAIRMENT [None]
  - MYOCARDIAL INFARCTION [None]
  - RHABDOMYOLYSIS [None]
